FAERS Safety Report 8774872 (Version 1)
Quarter: 2012Q4

REPORT INFORMATION
  Report Type: 
  Country: SE (occurrence: SE)
  Receive Date: 20120910
  Receipt Date: 20120910
  Transmission Date: 20130627
  Serious: Yes (Other)
  Sender: FDA-Public Use
  Company Number: SE-JNJFOC-20120813616

PATIENT
  Age: 67 Year
  Sex: Male

DRUGS (1)
  1. RISPERDAL CONSTA [Suspect]
     Indication: SCHIZOPHRENIA
     Route: 030

REACTIONS (5)
  - Parkinsonism [Unknown]
  - Delusion [Unknown]
  - Skin ulcer [Unknown]
  - Tremor [Unknown]
  - Musculoskeletal stiffness [Unknown]
